FAERS Safety Report 5518419-4 (Version None)
Quarter: 2007Q4

REPORT INFORMATION
  Report Type: 
  Country: None (occurrence: None)
  Receive Date: 20071113
  Receipt Date: 20071113
  Transmission Date: 20080405
  Serious: Yes (Other)
  Sender: FDA-Public Use
  Company Number: None

PATIENT
  Age: 27 Year
  Sex: Male
  Weight: 81.6475 kg

DRUGS (1)
  1. PROPECIA [Suspect]
     Indication: MALE PATTERN BALDNESS
     Dosage: 1 MG / 1 PILL 1X DAY PO
     Route: 048
     Dates: start: 20060208, end: 20070910

REACTIONS (6)
  - ERECTILE DYSFUNCTION [None]
  - LIBIDO DECREASED [None]
  - MALE ORGASMIC DISORDER [None]
  - ORGANIC ERECTILE DYSFUNCTION [None]
  - SEMEN VISCOSITY ABNORMAL [None]
  - SEMEN VOLUME DECREASED [None]
